FAERS Safety Report 12572541 (Version 2)
Quarter: 2016Q3

REPORT INFORMATION
  Report Type: Spontaneous
  Country: US (occurrence: US)
  Receive Date: 20160719
  Receipt Date: 20160824
  Transmission Date: 20161109
  Serious: Yes (Other)
  Sender: FDA-Public Use
  Company Number: US-AMGEN-USASP2016090821

PATIENT
  Age: 90 Year
  Sex: Female

DRUGS (1)
  1. PROLIA [Suspect]
     Active Substance: DENOSUMAB
     Indication: PRODUCT USED FOR UNKNOWN INDICATION
     Dosage: UNK
     Route: 065

REACTIONS (6)
  - Confusional state [Recovering/Resolving]
  - Gait disturbance [Recovering/Resolving]
  - Dehydration [Recovering/Resolving]
  - Neuropathy peripheral [Unknown]
  - Urinary tract infection [Recovering/Resolving]
  - Facial asymmetry [Recovering/Resolving]

NARRATIVE: CASE EVENT DATE: 20160709
